FAERS Safety Report 19683747 (Version 2)
Quarter: 2021Q3

REPORT INFORMATION
  Report Type: Report from Study
  Country: None (occurrence: US)
  Receive Date: 20210810
  Receipt Date: 20210819
  Transmission Date: 20211014
  Serious: Yes (Other)
  Sender: FDA-Public Use
  Company Number: US-ABBVIE-21K-163-4030938-00

PATIENT
  Age: 82 Year
  Sex: Female
  Weight: 86.26 kg

DRUGS (7)
  1. RINVOQ [Suspect]
     Active Substance: UPADACITINIB
     Route: 048
     Dates: start: 202106
  2. MODERNA COVID?19 VACCINE [Concomitant]
     Active Substance: CX-024414
     Indication: COVID-19 IMMUNISATION
     Route: 030
     Dates: start: 2021, end: 2021
  3. CARBIDOPA. [Concomitant]
     Active Substance: CARBIDOPA
     Indication: RESTLESS LEGS SYNDROME
  4. RINVOQ [Suspect]
     Active Substance: UPADACITINIB
     Indication: RHEUMATOID ARTHRITIS
     Route: 048
     Dates: start: 202008, end: 202106
  5. MODERNA COVID?19 VACCINE [Concomitant]
     Active Substance: CX-024414
     Route: 030
     Dates: start: 202104, end: 202104
  6. PREGABALIN. [Concomitant]
     Active Substance: PREGABALIN
     Indication: FIBROMYALGIA
  7. ADVIL [Concomitant]
     Active Substance: IBUPROFEN
     Indication: BACK PAIN

REACTIONS (3)
  - Fall [Recovered/Resolved]
  - Pain [Not Recovered/Not Resolved]
  - Osteoarthritis [Recovered/Resolved]

NARRATIVE: CASE EVENT DATE: 202012
